FAERS Safety Report 10224132 (Version 1)
Quarter: 2014Q2

REPORT INFORMATION
  Report Type: Report from Study
  Country: JP (occurrence: JP)
  Receive Date: 20140609
  Receipt Date: 20140609
  Transmission Date: 20141212
  Serious: Yes (Life-Threatening)
  Sender: FDA-Public Use
  Company Number: JP-SA-2014SA074432

PATIENT
  Age: 16 Year
  Sex: Female
  Weight: 64.2 kg

DRUGS (7)
  1. THYMOGLOBULINE [Suspect]
     Indication: APLASTIC ANAEMIA
     Route: 042
     Dates: start: 20130729, end: 20130802
  2. NEORAL [Concomitant]
     Indication: APLASTIC ANAEMIA
     Dates: start: 20130729, end: 201312
  3. DEFERASIROX [Concomitant]
     Indication: APLASTIC ANAEMIA
     Dates: start: 20130729, end: 201312
  4. DANAZOL [Concomitant]
     Dates: start: 20130729, end: 201312
  5. BAKTAR [Concomitant]
     Indication: PROPHYLAXIS
     Dates: start: 20130729
  6. ITRIZOLE [Concomitant]
     Indication: PROPHYLAXIS
     Dates: start: 20130816, end: 20131129
  7. MAGNESIUM OXIDE [Concomitant]
     Indication: PROPHYLAXIS
     Dates: start: 20130729

REACTIONS (1)
  - Pancytopenia [Recovered/Resolved]
